FAERS Safety Report 4612613-2 (Version None)
Quarter: 2005Q1

REPORT INFORMATION
  Report Type: 
  Country: None (occurrence: None)
  Receive Date: 20050316
  Receipt Date: 20050228
  Transmission Date: 20050727
  Serious: Yes (Hospitalization)
  Sender: FDA-Public Use
  Company Number: 2004BI001900

PATIENT
  Sex: Female

DRUGS (4)
  1. AVONEX [Suspect]
     Indication: MULTIPLE SCLEROSIS
     Dosage: IM
     Route: 030
     Dates: end: 20040101
  2. CELLCEPT [Concomitant]
  3. METHYLPREDNISOLONE [Concomitant]
  4. 4-AMINOPYRIDINE [Concomitant]

REACTIONS (6)
  - CHOLECYSTITIS [None]
  - CONDITION AGGRAVATED [None]
  - DISSEMINATED CYTOMEGALOVIRAL INFECTION [None]
  - MULTIPLE SCLEROSIS [None]
  - SEPSIS [None]
  - URINARY TRACT INFECTION [None]
